FAERS Safety Report 22802515 (Version 2)
Quarter: 2023Q4

REPORT INFORMATION
  Report Type: Spontaneous
  Country: ES (occurrence: ES)
  Receive Date: 20230809
  Receipt Date: 20231110
  Transmission Date: 20240110
  Serious: Yes (Life-Threatening, Hospitalization, Other)
  Sender: FDA-Public Use
  Company Number: US-Hikma Pharmaceuticals-US-H14001-23-00457

PATIENT
  Age: 65 Year
  Sex: Male
  Weight: 58 kg

DRUGS (97)
  1. BEVACIZUMAB [Suspect]
     Active Substance: BEVACIZUMAB
     Indication: Colorectal cancer
     Dosage: UNK
     Route: 065
     Dates: start: 20201221, end: 20220713
  2. BEVACIZUMAB [Suspect]
     Active Substance: BEVACIZUMAB
     Dosage: 325 MILLIGRAM
     Route: 042
     Dates: start: 20220902, end: 20220902
  3. BEVACIZUMAB [Suspect]
     Active Substance: BEVACIZUMAB
     Dosage: 325 MILLIGRAM
     Route: 042
     Dates: start: 20220916, end: 20220916
  4. BEVACIZUMAB [Suspect]
     Active Substance: BEVACIZUMAB
     Dosage: 325 MILLIGRAM
     Route: 042
     Dates: start: 20220930, end: 20220930
  5. BEVACIZUMAB [Suspect]
     Active Substance: BEVACIZUMAB
     Dosage: 325 MILLIGRAM
     Route: 042
     Dates: start: 20221028, end: 20221028
  6. BEVACIZUMAB [Suspect]
     Active Substance: BEVACIZUMAB
     Dosage: 325 MILLIGRAM
     Route: 042
     Dates: start: 20221121, end: 20221121
  7. BEVACIZUMAB [Suspect]
     Active Substance: BEVACIZUMAB
     Dosage: 325 MILLIGRAM
     Route: 042
     Dates: start: 20221205, end: 20221205
  8. BEVACIZUMAB [Suspect]
     Active Substance: BEVACIZUMAB
     Dosage: 325 MILLIGRAM
     Route: 042
     Dates: start: 20230109, end: 20230109
  9. BEVACIZUMAB [Suspect]
     Active Substance: BEVACIZUMAB
     Dosage: 325 MILLIGRAM
     Route: 040
     Dates: start: 20230309, end: 20230309
  10. BEVACIZUMAB [Suspect]
     Active Substance: BEVACIZUMAB
     Dosage: 325 MILLIGRAM
     Route: 040
     Dates: start: 20230323, end: 20230323
  11. BEVACIZUMAB [Suspect]
     Active Substance: BEVACIZUMAB
     Dosage: 325 MILLIGRAM
     Route: 040
     Dates: start: 20230410, end: 20230410
  12. BEVACIZUMAB [Suspect]
     Active Substance: BEVACIZUMAB
     Dosage: 325 MILLIGRAM
     Route: 040
     Dates: start: 20230424, end: 20230424
  13. BEVACIZUMAB [Suspect]
     Active Substance: BEVACIZUMAB
     Dosage: 325 MILLIGRAM
     Route: 040
     Dates: start: 20230508, end: 20230508
  14. BEVACIZUMAB [Suspect]
     Active Substance: BEVACIZUMAB
     Dosage: 325 MILLIGRAM
     Route: 040
     Dates: start: 20230522, end: 20230522
  15. BEVACIZUMAB [Suspect]
     Active Substance: BEVACIZUMAB
     Dosage: 325 MILLIGRAM
     Route: 040
     Dates: start: 20230606, end: 20230606
  16. BEVACIZUMAB [Suspect]
     Active Substance: BEVACIZUMAB
     Dosage: 325 MILLIGRAM
     Route: 042
     Dates: start: 20230627, end: 20230627
  17. BEVACIZUMAB [Suspect]
     Active Substance: BEVACIZUMAB
     Dosage: 325 MILLIGRAM
     Route: 042
     Dates: start: 20230711, end: 20230711
  18. BEVACIZUMAB [Suspect]
     Active Substance: BEVACIZUMAB
     Dosage: 325 MILLIGRAM
     Route: 042
     Dates: start: 20230808
  19. FLUOROURACIL [Suspect]
     Active Substance: FLUOROURACIL
     Indication: Colorectal cancer
     Dosage: UNK
     Route: 065
     Dates: start: 20201221, end: 20220713
  20. FLUOROURACIL [Suspect]
     Active Substance: FLUOROURACIL
     Dosage: 688 MILLIGRAM
     Route: 040
     Dates: start: 20220902, end: 20220902
  21. FLUOROURACIL [Suspect]
     Active Substance: FLUOROURACIL
     Dosage: 4128 MILLIGRAM
     Route: 040
     Dates: start: 20220902, end: 20220902
  22. FLUOROURACIL [Suspect]
     Active Substance: FLUOROURACIL
     Dosage: 4128 MILLIGRAM
     Route: 042
     Dates: start: 20220916, end: 20220916
  23. FLUOROURACIL [Suspect]
     Active Substance: FLUOROURACIL
     Dosage: 3302 MILLIGRAM
     Route: 040
     Dates: start: 20220930, end: 20220930
  24. FLUOROURACIL [Suspect]
     Active Substance: FLUOROURACIL
     Dosage: 688 MILLIGRAM
     Route: 040
     Dates: start: 20220930, end: 20220930
  25. FLUOROURACIL [Suspect]
     Active Substance: FLUOROURACIL
     Dosage: 3302 MILLIGRAM
     Route: 042
     Dates: start: 20221028, end: 20221028
  26. FLUOROURACIL [Suspect]
     Active Substance: FLUOROURACIL
     Dosage: 550 MILLIGRAM
     Route: 040
     Dates: start: 20221205, end: 20221205
  27. FLUOROURACIL [Suspect]
     Active Substance: FLUOROURACIL
     Dosage: 3302 MILLIGRAM
     Route: 042
     Dates: start: 20230109, end: 20230109
  28. FLUOROURACIL [Suspect]
     Active Substance: FLUOROURACIL
     Dosage: 550 MILLIGRAM
     Route: 042
     Dates: start: 20230121, end: 20230121
  29. FLUOROURACIL [Suspect]
     Active Substance: FLUOROURACIL
     Dosage: 550 MILLIGRAM
     Route: 040
     Dates: start: 20230223
  30. FLUOROURACIL [Suspect]
     Active Substance: FLUOROURACIL
     Dosage: 3302 MILLIGRAM
     Route: 040
     Dates: start: 20230223, end: 20230223
  31. FLUOROURACIL [Suspect]
     Active Substance: FLUOROURACIL
     Dosage: 3302 MILLIGRAM
     Route: 040
     Dates: start: 20230309, end: 20230309
  32. FLUOROURACIL [Suspect]
     Active Substance: FLUOROURACIL
     Dosage: 550 MILLIGRAM
     Route: 040
     Dates: start: 20230309, end: 20230309
  33. FLUOROURACIL [Suspect]
     Active Substance: FLUOROURACIL
     Dosage: 550 MILLIGRAM
     Route: 040
     Dates: start: 20230323, end: 20230323
  34. FLUOROURACIL [Suspect]
     Active Substance: FLUOROURACIL
     Dosage: 3302 MILLIGRAM
     Route: 040
     Dates: start: 20230323, end: 20230323
  35. FLUOROURACIL [Suspect]
     Active Substance: FLUOROURACIL
     Dosage: 550 MILLIGRAM
     Route: 040
     Dates: start: 20230410, end: 20230410
  36. FLUOROURACIL [Suspect]
     Active Substance: FLUOROURACIL
     Dosage: 3302 MILLIGRAM
     Route: 040
     Dates: start: 20230410, end: 20230410
  37. FLUOROURACIL [Suspect]
     Active Substance: FLUOROURACIL
     Dosage: 550 MILLIGRAM
     Route: 040
     Dates: start: 20230424, end: 20230424
  38. FLUOROURACIL [Suspect]
     Active Substance: FLUOROURACIL
     Dosage: 3302 MILLIGRAM
     Route: 040
     Dates: start: 20230424, end: 20230424
  39. FLUOROURACIL [Suspect]
     Active Substance: FLUOROURACIL
     Dosage: 3302 MILLIGRAM
     Route: 040
     Dates: start: 20230508, end: 20230508
  40. FLUOROURACIL [Suspect]
     Active Substance: FLUOROURACIL
     Dosage: 550 MILLIGRAM
     Route: 040
     Dates: start: 20230508, end: 20230508
  41. FLUOROURACIL [Suspect]
     Active Substance: FLUOROURACIL
     Dosage: 3302 MILLIGRAM
     Route: 040
     Dates: start: 20230522, end: 20230522
  42. FLUOROURACIL [Suspect]
     Active Substance: FLUOROURACIL
     Dosage: 550 MILLIGRAM
     Route: 040
     Dates: start: 20230522, end: 20230522
  43. FLUOROURACIL [Suspect]
     Active Substance: FLUOROURACIL
     Dosage: 3302 MILLIGRAM
     Route: 040
     Dates: start: 20230606, end: 20230606
  44. FLUOROURACIL [Suspect]
     Active Substance: FLUOROURACIL
     Dosage: 3302 MILLIGRAM
     Route: 042
     Dates: start: 20230627, end: 20230627
  45. FLUOROURACIL [Suspect]
     Active Substance: FLUOROURACIL
     Dosage: 550 MILLIGRAM
     Route: 040
     Dates: start: 20230606, end: 20230606
  46. FLUOROURACIL [Suspect]
     Active Substance: FLUOROURACIL
     Dosage: 550 MILLIGRAM
     Route: 042
     Dates: start: 20230627, end: 20230627
  47. FLUOROURACIL [Suspect]
     Active Substance: FLUOROURACIL
     Dosage: 550 MILLIGRAM
     Route: 042
     Dates: start: 20230711, end: 20230711
  48. FLUOROURACIL [Suspect]
     Active Substance: FLUOROURACIL
     Dosage: 3302 MILLIGRAM
     Route: 042
     Dates: start: 20230711, end: 20230711
  49. FLUOROURACIL [Suspect]
     Active Substance: FLUOROURACIL
     Dosage: 3187 MILLIGRAM
     Route: 042
     Dates: start: 20230721, end: 20230721
  50. FLUOROURACIL [Suspect]
     Active Substance: FLUOROURACIL
     Dosage: 531 MILLIGRAM
     Route: 042
     Dates: start: 20230724, end: 20230724
  51. FLUOROURACIL [Suspect]
     Active Substance: FLUOROURACIL
     Dosage: 531 MILLIGRAM
     Route: 042
     Dates: start: 20230808, end: 20230808
  52. FLUOROURACIL [Suspect]
     Active Substance: FLUOROURACIL
     Dosage: 3187 MILLIGRAM
     Route: 042
     Dates: start: 20230808, end: 20230808
  53. OXALIPLATIN [Suspect]
     Active Substance: OXALIPLATIN
     Indication: Colorectal cancer
     Dosage: UNK
     Route: 065
     Dates: start: 20201221, end: 20210419
  54. OXALIPLATIN [Suspect]
     Active Substance: OXALIPLATIN
     Dosage: 146 MILLIGRAM
     Route: 040
     Dates: start: 20220902, end: 20220902
  55. OXALIPLATIN [Suspect]
     Active Substance: OXALIPLATIN
     Dosage: 146 MILLIGRAM
     Route: 040
     Dates: start: 20230916, end: 20230916
  56. OXALIPLATIN [Suspect]
     Active Substance: OXALIPLATIN
     Dosage: 146 MILLIGRAM
     Route: 040
     Dates: start: 20220930, end: 20220930
  57. OXALIPLATIN [Suspect]
     Active Substance: OXALIPLATIN
     Dosage: 112 MILLIGRAM
     Route: 040
     Dates: start: 20221028, end: 20221028
  58. OXALIPLATIN [Suspect]
     Active Substance: OXALIPLATIN
     Dosage: 112 MILLIGRAM
     Route: 040
     Dates: start: 20221121, end: 20221121
  59. OXALIPLATIN [Suspect]
     Active Substance: OXALIPLATIN
     Dosage: 112 MILLIGRAM
     Route: 040
     Dates: start: 20221205, end: 20221205
  60. OXALIPLATIN [Suspect]
     Active Substance: OXALIPLATIN
     Dosage: 112 MILLIGRAM
     Route: 040
     Dates: start: 20230109, end: 20230109
  61. ZIMBERELIMAB [Suspect]
     Active Substance: ZIMBERELIMAB
     Indication: Colorectal cancer
     Dosage: 480 MILLIGRAM
     Route: 040
     Dates: start: 20220123, end: 20220123
  62. ZIMBERELIMAB [Suspect]
     Active Substance: ZIMBERELIMAB
     Dosage: 480 MILLIGRAM
     Route: 040
     Dates: start: 20220902, end: 20220902
  63. ZIMBERELIMAB [Suspect]
     Active Substance: ZIMBERELIMAB
     Dosage: 480 MILLIGRAM
     Route: 040
     Dates: start: 20220930, end: 20220930
  64. ZIMBERELIMAB [Suspect]
     Active Substance: ZIMBERELIMAB
     Dosage: 480 MILLIGRAM
     Route: 040
     Dates: start: 20221028, end: 20221028
  65. ZIMBERELIMAB [Suspect]
     Active Substance: ZIMBERELIMAB
     Dosage: 480 MILLIGRAM
     Route: 040
     Dates: start: 20221205, end: 20221205
  66. ZIMBERELIMAB [Suspect]
     Active Substance: ZIMBERELIMAB
     Dosage: 480 MILLIGRAM
     Route: 040
     Dates: start: 20230309, end: 20230309
  67. ZIMBERELIMAB [Suspect]
     Active Substance: ZIMBERELIMAB
     Dosage: 480 MILLIGRAM
     Route: 040
     Dates: start: 20230410, end: 20230410
  68. ZIMBERELIMAB [Suspect]
     Active Substance: ZIMBERELIMAB
     Dosage: 480 MILLIGRAM
     Route: 040
     Dates: start: 20230508, end: 20230508
  69. ZIMBERELIMAB [Suspect]
     Active Substance: ZIMBERELIMAB
     Dosage: 480 MILLIGRAM
     Route: 040
     Dates: start: 20230606, end: 20230606
  70. ZIMBERELIMAB [Suspect]
     Active Substance: ZIMBERELIMAB
     Dosage: 480 MILLIGRAM
     Route: 040
     Dates: start: 20230711, end: 20230711
  71. ZIMBERELIMAB [Suspect]
     Active Substance: ZIMBERELIMAB
     Dosage: 480 MILLIGRAM
     Route: 040
     Dates: start: 20230808, end: 20230808
  72. LEUCOVORIN [Suspect]
     Active Substance: LEUCOVORIN\LEUCOVORIN CALCIUM
     Indication: Colorectal cancer
     Dosage: 400 MILLIGRAM
     Route: 040
     Dates: start: 20220902, end: 20220902
  73. LEUCOVORIN [Suspect]
     Active Substance: LEUCOVORIN\LEUCOVORIN CALCIUM
     Dosage: 400 MILLIGRAM
     Route: 040
     Dates: start: 20220916, end: 20220916
  74. LEUCOVORIN [Suspect]
     Active Substance: LEUCOVORIN\LEUCOVORIN CALCIUM
     Dosage: 400 MILLIGRAM
     Route: 040
     Dates: start: 20220930, end: 20220930
  75. LEUCOVORIN [Suspect]
     Active Substance: LEUCOVORIN\LEUCOVORIN CALCIUM
     Dosage: 400 MILLIGRAM
     Route: 042
     Dates: start: 20221028, end: 20221028
  76. LEUCOVORIN [Suspect]
     Active Substance: LEUCOVORIN\LEUCOVORIN CALCIUM
     Dosage: 400 MILLIGRAM
     Route: 042
     Dates: start: 20221121, end: 20221121
  77. LEUCOVORIN [Suspect]
     Active Substance: LEUCOVORIN\LEUCOVORIN CALCIUM
     Dosage: 400 MILLIGRAM
     Route: 042
     Dates: start: 20221205, end: 20221205
  78. LEUCOVORIN [Suspect]
     Active Substance: LEUCOVORIN\LEUCOVORIN CALCIUM
     Dosage: 400 MILLIGRAM
     Route: 040
     Dates: start: 20230109, end: 20230109
  79. LEUCOVORIN [Suspect]
     Active Substance: LEUCOVORIN\LEUCOVORIN CALCIUM
     Dosage: 400 MILLIGRAM
     Route: 040
     Dates: start: 20230223, end: 20230223
  80. LEUCOVORIN [Suspect]
     Active Substance: LEUCOVORIN\LEUCOVORIN CALCIUM
     Dosage: 400 MILLIGRAM
     Route: 040
     Dates: start: 20230309, end: 20230309
  81. LEUCOVORIN [Suspect]
     Active Substance: LEUCOVORIN\LEUCOVORIN CALCIUM
     Dosage: 400 MILLIGRAM
     Route: 040
     Dates: start: 20230323, end: 20230323
  82. LEUCOVORIN [Suspect]
     Active Substance: LEUCOVORIN\LEUCOVORIN CALCIUM
     Dosage: 400 MILLIGRAM
     Route: 040
     Dates: start: 20230410, end: 20230410
  83. LEUCOVORIN [Suspect]
     Active Substance: LEUCOVORIN\LEUCOVORIN CALCIUM
     Dosage: 400 MILLIGRAM
     Route: 040
     Dates: start: 20230424, end: 20230424
  84. LEUCOVORIN [Suspect]
     Active Substance: LEUCOVORIN\LEUCOVORIN CALCIUM
     Dosage: 400 MILLIGRAM
     Route: 040
     Dates: start: 20230508, end: 20230508
  85. LEUCOVORIN [Suspect]
     Active Substance: LEUCOVORIN\LEUCOVORIN CALCIUM
     Dosage: 99 MILLIGRAM
     Route: 040
     Dates: start: 20230522, end: 20230522
  86. LEUCOVORIN [Suspect]
     Active Substance: LEUCOVORIN\LEUCOVORIN CALCIUM
     Dosage: 99 MILLIGRAM
     Route: 040
     Dates: start: 20230606, end: 20230606
  87. LEUCOVORIN [Suspect]
     Active Substance: LEUCOVORIN\LEUCOVORIN CALCIUM
     Dosage: 400 MILLIGRAM
     Route: 040
     Dates: start: 20230627, end: 20230627
  88. LEUCOVORIN [Suspect]
     Active Substance: LEUCOVORIN\LEUCOVORIN CALCIUM
     Dosage: 400 MILLIGRAM
     Route: 040
     Dates: start: 20230711, end: 20230711
  89. LEUCOVORIN [Suspect]
     Active Substance: LEUCOVORIN\LEUCOVORIN CALCIUM
     Dosage: 99 MILLIGRAM
     Route: 040
     Dates: start: 20230808, end: 20230808
  90. POLYETHYLENE GLYCOL 3350 [Concomitant]
     Active Substance: POLYETHYLENE GLYCOL 3350
     Dosage: UNK
     Route: 065
     Dates: start: 20220909
  91. CHLORTHALIDONE [Concomitant]
     Active Substance: CHLORTHALIDONE
     Dosage: UNK
     Route: 065
     Dates: start: 20220909
  92. CAPTOPIRIL [Concomitant]
     Indication: Adverse event
     Dosage: UNK
     Route: 065
     Dates: start: 20230123
  93. ATENOLOL [Concomitant]
     Active Substance: ATENOLOL
     Dosage: UNK
     Route: 065
     Dates: start: 20220909
  94. ENALAPRIL [Concomitant]
     Active Substance: ENALAPRIL
     Dosage: UNK
     Route: 065
     Dates: start: 20220909
  95. OMEPRAZOLE [Concomitant]
     Active Substance: OMEPRAZOLE
     Dosage: UNK
     Route: 065
     Dates: start: 20221222
  96. FLUOROURACIL [Concomitant]
     Active Substance: FLUOROURACIL
     Dosage: UNK
     Dates: start: 20201221, end: 20220713
  97. LEUCOVORIN [Concomitant]
     Active Substance: LEUCOVORIN\LEUCOVORIN CALCIUM
     Dosage: UNK
     Dates: start: 20201221, end: 20220713

REACTIONS (4)
  - Respiratory syncytial virus infection [Unknown]
  - Rash [Unknown]
  - Neutropenia [Recovered/Resolved]
  - Abdominal hernia [Recovered/Resolved]

NARRATIVE: CASE EVENT DATE: 20221028
